FAERS Safety Report 6710202-7 (Version None)
Quarter: 2010Q2

REPORT INFORMATION
  Report Type: 
  Country: None (occurrence: None)
  Receive Date: 20100430
  Receipt Date: 20100416
  Transmission Date: 20101027
  Serious: Yes (Hospitalization)
  Sender: FDA-Public Use
  Company Number: TCI2010A01499

PATIENT
  Sex: Male

DRUGS (4)
  1. BASEN (VOGLIBOSE) [Suspect]
     Indication: TYPE 2 DIABETES MELLITUS
     Dosage: 15 MG (15 MG, 1-2), PER ORAL
     Route: 048
     Dates: end: 20100413
  2. ACTOS [Suspect]
     Dosage: PER ORAL
     Route: 048
  3. AMARYL [Suspect]
     Dosage: 3 MG (3 MG, 1 D), PER ORAL
     Route: 048
  4. GLACTIV (SITAGLIPTIN PHOSPHATE HYDRATE) (ORAL ANTIDIABETICS) [Suspect]
     Dosage: PER ORAL
     Route: 048

REACTIONS (1)
  - HYPOGLYCAEMIC COMA [None]
